FAERS Safety Report 11437657 (Version 1)
Quarter: 2015Q3

REPORT INFORMATION
  Report Type: Spontaneous
  Country: US (occurrence: US)
  Receive Date: 20150821
  Receipt Date: 20150821
  Transmission Date: 20151125
  Serious: No
  Sender: FDA-Public Use
  Company Number: US-ELI_LILLY_AND_COMPANY-US200706001237

PATIENT
  Sex: Female

DRUGS (4)
  1. CYMBALTA [Suspect]
     Active Substance: DULOXETINE HYDROCHLORIDE
     Indication: DEPRESSION
     Dosage: 20 MG, EACH EVENING
     Route: 048
     Dates: start: 20070528, end: 2007
  2. OXYCODONE [Concomitant]
     Active Substance: OXYCODONE
     Dosage: UNK, DAILY (1/D)
  3. CLONAZEPAM. [Concomitant]
     Active Substance: CLONAZEPAM
     Dosage: UNK, DAILY (1/D)
  4. MAXALT                                  /NET/ [Concomitant]
     Indication: MIGRAINE
     Dosage: UNK, AS NEEDED

REACTIONS (1)
  - Migraine [Not Recovered/Not Resolved]

NARRATIVE: CASE EVENT DATE: 20070605
